FAERS Safety Report 6428497-6 (Version None)
Quarter: 2009Q4

REPORT INFORMATION
  Report Type: 
  Country: None (occurrence: None)
  Receive Date: 20091105
  Receipt Date: 20091027
  Transmission Date: 20100525
  Serious: Yes (Other)
  Sender: FDA-Public Use
  Company Number: US-BAYER-200937631NA

PATIENT
  Age: 45 Year
  Sex: Male

DRUGS (1)
  1. MAGNEVIST [Suspect]
     Indication: ANGIOGRAM
     Dosage: TOTAL DAILY DOSE: 36 ML
     Route: 042
     Dates: start: 20091027, end: 20091027

REACTIONS (5)
  - ANAPHYLACTIC REACTION [None]
  - FEELING HOT [None]
  - PHARYNGEAL OEDEMA [None]
  - SNEEZING [None]
  - URTICARIA [None]
